FAERS Safety Report 5373606-3 (Version None)
Quarter: 2007Q2

REPORT INFORMATION
  Report Type: 
  Country: None (occurrence: None)
  Receive Date: 20070626
  Receipt Date: 20070404
  Transmission Date: 20071010
  Serious: Yes (Hospitalization)
  Sender: FDA-Public Use
  Company Number: 491861

PATIENT
  Age: 35 Year
  Sex: Female

DRUGS (3)
  1. KLONOPIN [Suspect]
     Indication: DRUG USE FOR UNKNOWN INDICATION
     Dosage: 0.5 MG 2 PER DAY ORAL
     Route: 048
     Dates: start: 19960615
  2. SEROQUEL [Concomitant]
  3. AMBIEN [Concomitant]

REACTIONS (1)
  - DRUG DEPENDENCE [None]
